FAERS Safety Report 7630396-9 (Version None)
Quarter: 2011Q3

REPORT INFORMATION
  Report Type: 
  Country: None (occurrence: None)
  Receive Date: 20110722
  Receipt Date: 20110719
  Transmission Date: 20111222
  Serious: Yes (Other)
  Sender: FDA-Public Use
  Company Number: US-GLAXOSMITHKLINE-A0937322A

PATIENT
  Age: 53 Year
  Sex: Female

DRUGS (7)
  1. ADVAIR DISKUS 100/50 [Suspect]
     Indication: ASTHMA
     Dosage: 1PUFF TWICE PER DAY
     Route: 055
     Dates: start: 20110302
  2. DICYCLOMINE [Concomitant]
  3. FIORICET [Concomitant]
  4. NADOLOL [Concomitant]
  5. DOPAMINE HCL [Concomitant]
  6. ALPRAZOLAM [Concomitant]
  7. PURINOL [Concomitant]

REACTIONS (2)
  - ASTHMA [None]
  - PRODUCT QUALITY ISSUE [None]
